FAERS Safety Report 17562265 (Version 1)
Quarter: 2020Q1

REPORT INFORMATION
  Report Type: Spontaneous
  Country: FI (occurrence: FI)
  Receive Date: 20200319
  Receipt Date: 20200319
  Transmission Date: 20200409
  Serious: Yes (Hospitalization)
  Sender: FDA-Public Use
  Company Number: FI-AMERICAN REGENT INC-2020000690

PATIENT
  Sex: Female

DRUGS (7)
  1. VENOFER [Suspect]
     Active Substance: IRON SUCROSE
     Indication: PRODUCT USED FOR UNKNOWN INDICATION
     Dosage: 100 MILLIGRAM, 1 IN 2 D
     Route: 042
     Dates: start: 20200113, end: 20200127
  2. MALTOFER                           /00023548/ [Suspect]
     Active Substance: IRON POLYMALTOSE
     Dosage: 100 MG, 1 IN 2 D
     Route: 048
     Dates: start: 20200113, end: 20200127
  3. OFTAN-SYKLO [Suspect]
     Active Substance: CYCLOPENTOLATE HYDROCHLORIDE
     Indication: STRABISMUS
     Dosage: 2 GTT DROPS, 1 IN 24 HR
     Route: 047
     Dates: start: 20200108, end: 20200212
  4. MALTOFER                           /00023548/ [Suspect]
     Active Substance: IRON POLYMALTOSE
     Indication: PRODUCT USED FOR UNKNOWN INDICATION
     Dosage: 25 MILLIGRAM, 1 IN 2 D
     Route: 048
     Dates: start: 20200113, end: 20200127
  5. VENOFER [Suspect]
     Active Substance: IRON SUCROSE
     Dosage: 25MG, 1 IN 2 D
     Route: 042
     Dates: start: 20200113, end: 20200127
  6. FERINJECT [Suspect]
     Active Substance: FERRIC CARBOXYMALTOSE
     Indication: PRODUCT USED FOR UNKNOWN INDICATION
     Dosage: 100 MILLIGRAM, 1 IN 2 D
     Route: 042
     Dates: start: 20200113, end: 20200127
  7. FERINJECT [Suspect]
     Active Substance: FERRIC CARBOXYMALTOSE
     Dosage: 25 MG, 1 IN 2 D
     Route: 042
     Dates: start: 20200113, end: 20200127

REACTIONS (6)
  - Incorrect product administration duration [Unknown]
  - Dysphagia [Not Recovered/Not Resolved]
  - Off label use [Unknown]
  - Therapy cessation [Unknown]
  - Product use in unapproved indication [Unknown]
  - Constipation [Not Recovered/Not Resolved]

NARRATIVE: CASE EVENT DATE: 2020
